FAERS Safety Report 5109899-7 (Version None)
Quarter: 2006Q3

REPORT INFORMATION
  Report Type: 
  Country: None (occurrence: None)
  Receive Date: 20060921
  Receipt Date: 20060912
  Transmission Date: 20061208
  Serious: Yes (Hospitalization, Other)
  Sender: FDA-Public Use
  Company Number: GB-JNJFOC-20060902897

PATIENT
  Sex: Female
  Weight: 68 kg

DRUGS (8)
  1. REMICADE [Suspect]
     Indication: RHEUMATOID ARTHRITIS
     Route: 042
  2. METHOTREXATE [Concomitant]
  3. CO-PROXAMOL [Concomitant]
  4. FOLIC ACID [Concomitant]
  5. LISINOPRIL [Concomitant]
  6. THYROXINE [Concomitant]
  7. IMODIUM [Concomitant]
  8. PREDNISOLONE [Concomitant]

REACTIONS (1)
  - IRRITABLE BOWEL SYNDROME [None]
